FAERS Safety Report 7362542-9 (Version None)
Quarter: 2011Q1

REPORT INFORMATION
  Report Type: 
  Country: None (occurrence: None)
  Receive Date: 20110318
  Receipt Date: 20110309
  Transmission Date: 20110831
  Serious: Yes (Other)
  Sender: FDA-Public Use
  Company Number: US-ASTRAZENECA-2011SE13673

PATIENT
  Age: 68 Year
  Sex: Female

DRUGS (2)
  1. ZESTRIL [Suspect]
     Route: 048
  2. LISINOPRIL [Suspect]

REACTIONS (9)
  - PHARYNGEAL OEDEMA [None]
  - NAUSEA [None]
  - PALPITATIONS [None]
  - SWOLLEN TONGUE [None]
  - HYPOAESTHESIA [None]
  - DYSPHAGIA [None]
  - ASTHENIA [None]
  - BREAST CANCER [None]
  - HEADACHE [None]
